FAERS Safety Report 9531944 (Version 1)
Quarter: 2013Q3

REPORT INFORMATION
  Report Type: Spontaneous
  Country: US (occurrence: None)
  Receive Date: 20130917
  Receipt Date: 20130917
  Transmission Date: 20140515
  Serious: Yes (Other)
  Sender: FDA-Public Use
  Company Number: None

PATIENT
  Age: 34 Year
  Sex: Female

DRUGS (2)
  1. DIHYDROERGOTAMINE [Suspect]
     Indication: MIGRAINE
     Dosage: 1 SPRAY RESPIRATORY
     Dates: start: 20130914, end: 20130914
  2. MIGRANAL [Concomitant]

REACTIONS (2)
  - Hypoaesthesia [None]
  - Paraesthesia [None]
